FAERS Safety Report 9337331 (Version 1)
Quarter: 2013Q2

REPORT INFORMATION
  Report Type: Spontaneous
  Country: US (occurrence: US)
  Receive Date: 20130607
  Receipt Date: 20130607
  Transmission Date: 20140414
  Serious: Yes (Hospitalization)
  Sender: FDA-Public Use
  Company Number: US-GLAXOSMITHKLINE-A1025367A

PATIENT
  Age: 41 Year
  Sex: Female

DRUGS (3)
  1. PAXIL [Suspect]
     Indication: POSTPARTUM DEPRESSION
     Dosage: 40MG PER DAY
     Route: 065
     Dates: start: 1993, end: 2005
  2. THYROID MEDICATION [Concomitant]
  3. ANTI-CHOLESTEROL MEDICATION [Concomitant]
     Indication: BLOOD CHOLESTEROL INCREASED

REACTIONS (9)
  - Cerebrovascular accident [Not Recovered/Not Resolved]
  - Blindness cortical [Recovered/Resolved]
  - Blindness [Recovered/Resolved]
  - Paralysis [Recovered/Resolved]
  - Cerebral vasoconstriction [Not Recovered/Not Resolved]
  - Metamorphopsia [Not Recovered/Not Resolved]
  - Memory impairment [Not Recovered/Not Resolved]
  - Gait disturbance [Not Recovered/Not Resolved]
  - Activities of daily living impaired [Not Recovered/Not Resolved]
